FAERS Safety Report 9940652 (Version 1)
Quarter: 2014Q1

REPORT INFORMATION
  Report Type: Spontaneous
  Country: FR (occurrence: FR)
  Receive Date: 20140303
  Receipt Date: 20140303
  Transmission Date: 20141002
  Serious: Yes (Death, Hospitalization)
  Sender: FDA-Public Use
  Company Number: FR-PFIZER INC-2014056342

PATIENT
  Age: 58 Year
  Sex: Male

DRUGS (23)
  1. TRIFLUCAN [Suspect]
     Indication: ORAL CANDIDIASIS
     Dosage: 5 ML, 1X/DAY
     Route: 048
     Dates: start: 20131012
  2. LEVACT [Suspect]
     Indication: B-CELL LYMPHOMA
     Dosage: 240 MG, UNK
     Route: 042
     Dates: start: 20130822, end: 20130822
  3. LEVACT [Suspect]
     Dosage: 240 MG, UNK
     Route: 042
     Dates: start: 20131009, end: 20131009
  4. MABTHERA [Suspect]
     Indication: B-CELL LYMPHOMA
     Dosage: 761.25 MG, UNK
     Route: 042
     Dates: start: 20130823, end: 20130823
  5. MABTHERA [Suspect]
     Dosage: 750 MG, UNK
     Route: 042
     Dates: start: 20130925, end: 20130925
  6. ALLOPURINOL BIOGARAN [Suspect]
     Dosage: 200 MG, 1X/DAY
     Route: 048
     Dates: start: 20130827, end: 20130917
  7. ALLOPURINOL BIOGARAN [Suspect]
     Dosage: 200 MG, 1X/DAY
     Route: 048
     Dates: start: 20131009
  8. HYDROCHLOROTHIAZIDE/IRBESARTAN HYDROCHLORIDE ZENTIVA [Suspect]
     Indication: HYPERTENSION
     Dosage: 1 DF, DAILY
     Route: 048
     Dates: start: 20130827, end: 20130919
  9. HYDROCHLOROTHIAZIDE/IRBESARTAN HYDROCHLORIDE ZENTIVA [Suspect]
     Dosage: 1 DF, DAILY
     Route: 048
     Dates: start: 20130923
  10. ACEBUTOLOL BIOGARAN [Suspect]
     Indication: HYPERTENSION
     Dosage: 100 MG, 1X/DAY
     Route: 048
     Dates: start: 20130827, end: 20130918
  11. ACEBUTOLOL BIOGARAN [Suspect]
     Dosage: 100 MG, 1X/DAY
     Route: 048
     Dates: start: 20130923
  12. ATORVASTATIN ZENTIVA [Concomitant]
     Dosage: 40 MG, 1X/DAY
     Route: 048
  13. ESOMEPRAZOLE BIOGARAN [Concomitant]
     Dosage: 20 MG, 1X/DAY
     Route: 048
  14. VALACICLOVIR ZENTIVA [Concomitant]
     Indication: SECONDARY IMMUNODEFICIENCY
     Dosage: 500 MG, 2X/DAY
     Route: 048
     Dates: start: 20130801
  15. KARDEGIC [Concomitant]
     Dosage: 75 MG, DAILY
     Route: 048
  16. INNOHEP [Concomitant]
     Dosage: 0.8 ML, 1X/DAY
     Route: 058
     Dates: start: 20130807
  17. ARANESP [Concomitant]
     Indication: HAEMOGLOBIN ABNORMAL
     Dosage: 1 INJECTION IF HEMOGLOBIN BELOW 12 G/DL
     Route: 058
     Dates: start: 20130827
  18. HYDROXYZINE [Concomitant]
     Dosage: UNK
     Dates: start: 201309
  19. CETIRIZINE [Concomitant]
     Dosage: UNK
     Dates: start: 201309
  20. BETAMETHASONE [Concomitant]
     Indication: SKIN LESION
     Dosage: UNK
     Route: 061
     Dates: start: 20130920
  21. CLOBETASOL [Concomitant]
     Indication: SKIN LESION
     Dosage: UNK
     Route: 061
     Dates: start: 20130920
  22. ZYVOX [Concomitant]
     Dosage: 600 MG, 2X/DAY
     Dates: start: 20130920, end: 20131004
  23. ZYVOX [Concomitant]
     Dosage: 600 MG, 2X/DAY
     Dates: start: 201311

REACTIONS (1)
  - Toxic epidermal necrolysis [Fatal]
